FAERS Safety Report 19367800 (Version 1)
Quarter: 2021Q2

REPORT INFORMATION
  Report Type: Report from Study
  Country: US (occurrence: US)
  Receive Date: 20210602
  Receipt Date: 20210602
  Transmission Date: 20210717
  Serious: Yes (Other)
  Sender: FDA-Public Use
  Company Number: US-TAKEDA-2021TUS034678

PATIENT
  Sex: Male

DRUGS (1)
  1. VEDOLIZUMAB [Suspect]
     Active Substance: VEDOLIZUMAB
     Indication: INFLAMMATORY BOWEL DISEASE
     Dosage: UNK
     Route: 042
     Dates: start: 20180529

REACTIONS (4)
  - Papillary thyroid cancer [Recovered/Resolved]
  - Thyroid mass [Recovered/Resolved]
  - Headache [Recovered/Resolved]
  - Pleural mass [Not Recovered/Not Resolved]

NARRATIVE: CASE EVENT DATE: 20190916
